FAERS Safety Report 7487962-3 (Version None)
Quarter: 2011Q2

REPORT INFORMATION
  Report Type: 
  Country: None (occurrence: None)
  Receive Date: 20110518
  Receipt Date: 20110504
  Transmission Date: 20111010
  Serious: Yes (Other)
  Sender: FDA-Public Use
  Company Number: CA-JNJFOC-20110502934

PATIENT
  Sex: Female
  Weight: 104 kg

DRUGS (3)
  1. REMICADE [Suspect]
     Indication: COLITIS ULCERATIVE
     Route: 042
     Dates: start: 20100604
  2. PREDNISONE [Concomitant]
  3. MERCAPTOPURINE [Concomitant]
     Dates: start: 20100501

REACTIONS (1)
  - HISTOPLASMOSIS [None]
